FAERS Safety Report 6964529-4 (Version None)
Quarter: 2010Q3

REPORT INFORMATION
  Report Type: 
  Country: None (occurrence: None)
  Receive Date: 20100903
  Receipt Date: 20100830
  Transmission Date: 20110219
  Serious: Yes (Other)
  Sender: FDA-Public Use
  Company Number: US-ASTRAZENECA-2007UW27527

PATIENT
  Age: 38 Year
  Sex: Male
  Weight: 115.7 kg

DRUGS (9)
  1. SEROQUEL [Suspect]
     Indication: ANXIETY
     Route: 048
     Dates: start: 20060101, end: 20070101
  2. SEROQUEL [Suspect]
     Indication: DEPRESSION
     Route: 048
     Dates: start: 20060101, end: 20070101
  3. SEROQUEL [Suspect]
     Indication: SLEEP DISORDER
     Route: 048
     Dates: start: 20060101, end: 20070101
  4. SEROQUEL [Suspect]
     Dosage: 100 MG
     Route: 048
     Dates: start: 20060908, end: 20070203
  5. SEROQUEL [Suspect]
     Dosage: 100 MG
     Route: 048
     Dates: start: 20060908, end: 20070203
  6. SEROQUEL [Suspect]
     Dosage: 100 MG
     Route: 048
     Dates: start: 20060908, end: 20070203
  7. RISPERDAL [Concomitant]
     Indication: BIPOLAR DISORDER
     Dosage: 1 MG
     Dates: start: 20060601, end: 20070101
  8. ABILIFY [Concomitant]
     Dates: start: 20050101, end: 20060101
  9. GEODON [Concomitant]
     Dosage: 60 MG

REACTIONS (6)
  - BACK DISORDER [None]
  - BACK INJURY [None]
  - BLOOD CHOLESTEROL INCREASED [None]
  - DIABETIC COMPLICATION [None]
  - HYPERLIPIDAEMIA [None]
  - TYPE 2 DIABETES MELLITUS [None]
